FAERS Safety Report 9234128 (Version 2)
Quarter: 2013Q3

REPORT INFORMATION
  Report Type: Report from Study
  Country: CA (occurrence: CA)
  Receive Date: 20130416
  Receipt Date: 20130813
  Transmission Date: 20140515
  Serious: Yes (Hospitalization)
  Sender: FDA-Public Use
  Company Number: CA-ELI_LILLY_AND_COMPANY-CA201304002786

PATIENT
  Age: 81 Year
  Sex: Male

DRUGS (13)
  1. TERIPARATIDE [Suspect]
     Indication: OSTEOPOROSIS
     Dosage: 20 UG, QD
     Route: 058
     Dates: start: 20130328, end: 20130612
  2. SULCRATE [Concomitant]
  3. METRONIDAZOLE [Concomitant]
  4. DOMPERIDONE [Concomitant]
  5. NORFLOXACIN [Concomitant]
  6. CALCIUM [Concomitant]
  7. VITAMIN D [Concomitant]
  8. MULTIVITAMIN [Concomitant]
  9. TPN [Concomitant]
     Dosage: UNK, UNKNOWN
     Route: 065
  10. TAMSULOSIN [Concomitant]
     Dosage: UNK, UNKNOWN
     Route: 065
  11. LEVOTHYROXINE [Concomitant]
     Dosage: UNK, UNKNOWN
     Route: 065
  12. CALCIUM CITRATE [Concomitant]
     Dosage: UNK, UNKNOWN
     Route: 065
  13. OXAZEPAM [Concomitant]
     Dosage: UNK, UNKNOWN
     Route: 065

REACTIONS (3)
  - Pyrexia [Recovered/Resolved]
  - Blood alkaline phosphatase increased [Unknown]
  - Alanine aminotransferase increased [Unknown]
